FAERS Safety Report 19368138 (Version 1)
Quarter: 2021Q2

REPORT INFORMATION
  Report Type: Spontaneous
  Country: US (occurrence: US)
  Receive Date: 20210602
  Receipt Date: 20210602
  Transmission Date: 20210717
  Serious: No
  Sender: FDA-Public Use
  Company Number: US-GW PHARMA-202105USGW02621

PATIENT

DRUGS (1)
  1. EPIDIOLEX [Suspect]
     Active Substance: CANNABIDIOL
     Indication: IDIOPATHIC GENERALISED EPILEPSY
     Dosage: 9.72 MG/KG/DAY, 130 MILLIGRAM, BID (DOSE INCREASED TO 14.20 MG/KG/DAY, 190 MILLIGRAM, BID; WILL STAR
     Route: 048
     Dates: start: 202104

REACTIONS (3)
  - Product use in unapproved indication [Unknown]
  - Weight decreased [Unknown]
  - Tooth disorder [Unknown]

NARRATIVE: CASE EVENT DATE: 202104
